FAERS Safety Report 19849621 (Version 1)
Quarter: 2021Q3

REPORT INFORMATION
  Report Type: Report from Study
  Country: LB (occurrence: LB)
  Receive Date: 20210917
  Receipt Date: 20210917
  Transmission Date: 20211014
  Serious: Yes (Hospitalization)
  Sender: FDA-Public Use
  Company Number: LB-BRISTOL-MYERS SQUIBB COMPANY-BMS-2021-092605

PATIENT
  Age: 54 Year
  Sex: Female
  Weight: 79 kg

DRUGS (1)
  1. NIVOLUMAB [Suspect]
     Active Substance: NIVOLUMAB
     Indication: METASTATIC MALIGNANT MELANOMA
     Dosage: 480 MILLIGRAM, Q4WK
     Route: 042
     Dates: start: 20181011

REACTIONS (1)
  - Thyroid mass [Recovering/Resolving]
